FAERS Safety Report 6235524-8 (Version None)
Quarter: 2009Q2

REPORT INFORMATION
  Report Type: 
  Country: None (occurrence: None)
  Receive Date: 20090618
  Receipt Date: 20080818
  Transmission Date: 20091009
  Serious: No
  Sender: FDA-Public Use
  Company Number: US-ASTRAZENECA-2008UW16991

PATIENT
  Age: 58 Year
  Sex: Female
  Weight: 90.7 kg

DRUGS (7)
  1. RHINOCORT [Suspect]
     Indication: HYPERSENSITIVITY
     Dosage: 2 SPRAYS EACH NOSTRIL EACH MORNING
     Route: 045
     Dates: start: 19980101
  2. RHINOCORT [Suspect]
     Indication: POSTNASAL DRIP
     Dosage: 2 SPRAYS EACH NOSTRIL EACH MORNING
     Route: 045
     Dates: start: 19980101
  3. ZIAC [Concomitant]
  4. LEVOTHYROXINE SODIUM [Concomitant]
  5. PRAVACHOL [Concomitant]
  6. PREVACID [Concomitant]
  7. LORAZEPAM [Concomitant]

REACTIONS (3)
  - EAR INFECTION [None]
  - OROPHARYNGEAL PAIN [None]
  - SINUSITIS [None]
